FAERS Safety Report 9929717 (Version 2)
Quarter: 2014Q1

REPORT INFORMATION
  Report Type: Spontaneous
  Country: US (occurrence: US)
  Receive Date: 20140227
  Receipt Date: 20140310
  Transmission Date: 20141002
  Serious: Yes (Other)
  Sender: FDA-Public Use
  Company Number: US-TEVA-463895USA

PATIENT
  Sex: Female
  Weight: 54.48 kg

DRUGS (5)
  1. AZILECT [Suspect]
     Indication: PARKINSON^S DISEASE
     Dosage: 1 MILLIGRAM DAILY;
     Dates: start: 201308, end: 201309
  2. AZILECT [Suspect]
     Dosage: .5 MILLIGRAM DAILY;
     Dates: start: 201312
  3. SIMVASTATIN [Concomitant]
     Indication: BLOOD CHOLESTEROL INCREASED
  4. FORTEO [Concomitant]
     Dates: end: 201312
  5. VITAMINS [Concomitant]

REACTIONS (9)
  - Mental impairment [Recovered/Resolved]
  - Anxiety [Recovered/Resolved]
  - Depressed mood [Recovered/Resolved]
  - Depression [Recovered/Resolved]
  - Dyspnoea [Recovered/Resolved]
  - Drug effect increased [Recovered/Resolved]
  - Adverse event [Recovered/Resolved]
  - Tremor [Not Recovered/Not Resolved]
  - Drug effect decreased [Not Recovered/Not Resolved]
